FAERS Safety Report 19551878 (Version 1)
Quarter: 2021Q3

REPORT INFORMATION
  Report Type: Spontaneous
  Country: US (occurrence: US)
  Receive Date: 20210715
  Receipt Date: 20210715
  Transmission Date: 20211014
  Serious: Yes (Other)
  Sender: FDA-Public Use
  Company Number: US-SCIEGENPHARMA-2020SCILIT00217

PATIENT
  Age: 66 Year
  Sex: Female

DRUGS (1)
  1. LAMOTRIGINE TABLETS [Suspect]
     Active Substance: LAMOTRIGINE
     Indication: PARTIAL SEIZURES
     Route: 065

REACTIONS (6)
  - Vomiting [Unknown]
  - Dysphagia [Unknown]
  - Confusional state [Unknown]
  - Toxicity to various agents [Unknown]
  - Nausea [Unknown]
  - Vertigo [Unknown]
